FAERS Safety Report 8339458 (Version 2)
Quarter: 2012Q4

REPORT INFORMATION
  Report Type: 
  Country: US (occurrence: US)
  Receive Date: 20120117
  Receipt Date: 20121213
  Transmission Date: 20130627
  Serious: Yes (Hospitalization)
  Sender: FDA-Public Use
  Company Number: US-GLAXOSMITHKLINE-A0928786A

PATIENT
  Age: 48 Year
  Sex: Female

DRUGS (1)
  1. AVANDIA [Suspect]
     Indication: DIABETES MELLITUS
     Dosage: 2MG Twice per day
     Route: 048

REACTIONS (3)
  - Cardiac disorder [Not Recovered/Not Resolved]
  - Ill-defined disorder [Unknown]
  - Pain [Unknown]
